FAERS Safety Report 16861808 (Version 1)
Quarter: 2019Q3

REPORT INFORMATION
  Report Type: Spontaneous
  Country: AT (occurrence: AT)
  Receive Date: 20190927
  Receipt Date: 20190927
  Transmission Date: 20191005
  Serious: Yes (Other)
  Sender: FDA-Public Use
  Company Number: AT-ABBVIE-19K-009-2941250-00

PATIENT
  Sex: Female

DRUGS (1)
  1. HUMIRA [Suspect]
     Active Substance: ADALIMUMAB
     Indication: CROHN^S DISEASE
     Route: 058
     Dates: end: 201905

REACTIONS (4)
  - Autoantibody positive [Unknown]
  - Systemic lupus erythematosus [Not Recovered/Not Resolved]
  - Lyme disease [Not Recovered/Not Resolved]
  - Arthropathy [Not Recovered/Not Resolved]
